FAERS Safety Report 6094193-0 (Version None)
Quarter: 2009Q1

REPORT INFORMATION
  Report Type: 
  Country: None (occurrence: None)
  Receive Date: 20090226
  Receipt Date: 20090225
  Transmission Date: 20090719
  Serious: Yes (Hospitalization)
  Sender: FDA-Public Use
  Company Number: US-BRISTOL-MYERS SQUIBB COMPANY-14521116

PATIENT
  Age: 81 Year
  Sex: Female
  Weight: 4 kg

DRUGS (6)
  1. SINEMET [Suspect]
     Indication: PARKINSON'S DISEASE
     Dosage: TAKING FOR 4.5-5 YEARS
  2. SINEMET CR [Concomitant]
  3. HYDROXYUREA [Concomitant]
  4. TOPROL-XL [Concomitant]
  5. ASPIRIN [Concomitant]
  6. VITAMINS [Concomitant]

REACTIONS (2)
  - ANXIETY [None]
  - ASTHMA [None]
